FAERS Safety Report 17125313 (Version 1)
Quarter: 2019Q4

REPORT INFORMATION
  Report Type: Report from Study
  Country: US (occurrence: US)
  Receive Date: 20191207
  Receipt Date: 20191207
  Transmission Date: 20200122
  Serious: Yes (Death)
  Sender: FDA-Public Use
  Company Number: US-ROCHE-2281059

PATIENT
  Age: 78 Year
  Sex: Female
  Weight: 81.72 kg

DRUGS (2)
  1. ESBRIET [Suspect]
     Active Substance: PIRFENIDONE
     Indication: IDIOPATHIC PULMONARY FIBROSIS
     Dosage: 2, 3 TIMES A DAY; IN THE 3RD WEEK OF TAKING IT PALE YELLOW TABLETS
     Route: 048
  2. ESBRIET [Suspect]
     Active Substance: PIRFENIDONE
     Dosage: TWO PILLS, THREE TIMES A DAY WITH MEALS;ONGOING:NO
     Route: 048
     Dates: start: 20190109, end: 20190311

REACTIONS (8)
  - Dyspnoea [Not Recovered/Not Resolved]
  - Nausea [Fatal]
  - Headache [Fatal]
  - Chills [Not Recovered/Not Resolved]
  - Vomiting [Fatal]
  - Pruritus [Fatal]
  - Dizziness [Not Recovered/Not Resolved]
  - Fatigue [Fatal]

NARRATIVE: CASE EVENT DATE: 20190303
